FAERS Safety Report 10351428 (Version 3)
Quarter: 2014Q4

REPORT INFORMATION
  Report Type: Spontaneous
  Country: IT (occurrence: IT)
  Receive Date: 20140730
  Receipt Date: 20141130
  Transmission Date: 20150528
  Serious: Yes (Hospitalization)
  Sender: FDA-Public Use
  Company Number: IT-BRISTOL-MYERS SQUIBB COMPANY-21230529

PATIENT
  Age: 86 Year
  Sex: Male

DRUGS (5)
  1. COUMADIN [Suspect]
     Active Substance: WARFARIN SODIUM
     Route: 048
     Dates: start: 20140422, end: 20140613
  2. ZYLORIC [Suspect]
     Active Substance: ALLOPURINOL
     Dosage: TABLET
     Route: 048
     Dates: start: 20130613, end: 20140613
  3. PAROXETINE HCL [Suspect]
     Active Substance: PAROXETINE HYDROCHLORIDE
     Route: 048
     Dates: start: 20130613, end: 20140613
  4. URBASON [Suspect]
     Active Substance: METHYLPREDNISOLONE
     Route: 048
     Dates: start: 20130613, end: 20140614
  5. DEPAKINE CHRONO [Suspect]
     Active Substance: VALPROATE SODIUM
     Dosage: TABLET
     Route: 048
     Dates: start: 20130613, end: 20140613

REACTIONS (4)
  - International normalised ratio increased [Recovering/Resolving]
  - Syncope [Recovering/Resolving]
  - Melaena [Recovering/Resolving]
  - Anaemia [Recovering/Resolving]

NARRATIVE: CASE EVENT DATE: 20140613
